FAERS Safety Report 13211503 (Version 4)
Quarter: 2017Q3

REPORT INFORMATION
  Report Type: Spontaneous
  Country: US (occurrence: US)
  Receive Date: 20170210
  Receipt Date: 20170824
  Transmission Date: 20171127
  Serious: Yes (Hospitalization, Congenital Anomaly, Other)
  Sender: FDA-Public Use
  Company Number: PHEH2017US004016

PATIENT
  Sex: Male

DRUGS (1)
  1. ZOFRAN ODT [Suspect]
     Active Substance: ONDANSETRON HYDROCHLORIDE
     Indication: FOETAL EXPOSURE DURING PREGNANCY
     Dosage: MOTHER^S DOSE: 04 MG, PRN
     Route: 064

REACTIONS (16)
  - Foetal exposure during pregnancy [Unknown]
  - Vesicoureteric reflux [Unknown]
  - Decreased appetite [Unknown]
  - Influenza [Unknown]
  - Single functional kidney [Unknown]
  - Renal aplasia [Unknown]
  - Urinary tract infection neonatal [Unknown]
  - Respiratory tract infection [Unknown]
  - Poor weight gain neonatal [Unknown]
  - Seborrhoeic dermatitis [Unknown]
  - Respiratory distress [Unknown]
  - Congenital hydronephrosis [Unknown]
  - Congenital megaureter [Recovered/Resolved]
  - Injury [Unknown]
  - Dysuria [Unknown]
  - Dyspnoea [Unknown]
